FAERS Safety Report 9837118 (Version 1)
Quarter: 2014Q1

REPORT INFORMATION
  Report Type: Spontaneous
  Country: US (occurrence: US)
  Receive Date: 20140123
  Receipt Date: 20140123
  Transmission Date: 20141002
  Serious: Yes (Other)
  Sender: FDA-Public Use
  Company Number: US-RB-062123-14

PATIENT
  Sex: Female

DRUGS (1)
  1. MUCINEX DM MAXIMUM STRENGTH [Suspect]
     Indication: COUGH
     Dosage: LAST TOOK PRODUCT ON 06-JAN-2014
     Route: 048
     Dates: start: 20140104

REACTIONS (2)
  - Dyskinesia [Not Recovered/Not Resolved]
  - Swelling face [Not Recovered/Not Resolved]
